APPROVED DRUG PRODUCT: TRIMOX
Active Ingredient: AMOXICILLIN
Strength: 250MG/5ML
Dosage Form/Route: FOR SUSPENSION;ORAL
Application: A062885 | Product #002
Applicant: APOTHECON INC DIV BRISTOL MYERS SQUIBB
Approved: Mar 8, 1988 | RLD: No | RS: No | Type: DISCN